FAERS Safety Report 4323712-7 (Version None)
Quarter: 2004Q1

REPORT INFORMATION
  Report Type: 
  Country: None (occurrence: None)
  Receive Date: 20040323
  Receipt Date: 20040308
  Transmission Date: 20041129
  Serious: Yes (Hospitalization, Other)
  Sender: FDA-Public Use
  Company Number: MAG-2004-0000239

PATIENT
  Age: 49 Year
  Sex: Female

DRUGS (6)
  1. MORPHINE SULFATE [Suspect]
     Indication: CANCER PAIN
     Dosage: 1080 MG, DAILY
     Dates: start: 20030801
  2. MORPHINE SULFATE [Suspect]
     Indication: CANCER PAIN
     Dosage: 1080 MG, DAILY
     Dates: start: 20031201
  3. VOLTAREN ^NOVARTIS^ (DICLOFENAC SODIUM) [Concomitant]
  4. LOXONIN (LOXOPROFEN SODIUM) [Concomitant]
  5. TEGRETOL [Concomitant]
  6. LAXATIVES [Concomitant]

REACTIONS (3)
  - CONVULSION [None]
  - ENTERITIS [None]
  - VIRAL INFECTION [None]
